FAERS Safety Report 6250607-4 (Version None)
Quarter: 2009Q2

REPORT INFORMATION
  Report Type: 
  Country: None (occurrence: None)
  Receive Date: 20090630
  Receipt Date: 20080617
  Transmission Date: 20091009
  Serious: No
  Sender: FDA-Public Use
  Company Number: US-ABBOTT-08P-163-0459420-00

PATIENT

DRUGS (1)
  1. ZEMPLAR [Suspect]
     Indication: VITAMIN D DEFICIENCY
     Dosage: NOT REPORTED

REACTIONS (1)
  - BLOOD CALCIUM DECREASED [None]
